FAERS Safety Report 4297683-6 (Version None)
Quarter: 2004Q1

REPORT INFORMATION
  Report Type: 
  Country: None (occurrence: None)
  Receive Date: 20040213
  Receipt Date: 20040130
  Transmission Date: 20041129
  Serious: No
  Sender: FDA-Public Use
  Company Number: RENA-10699

PATIENT
  Age: 37 Year
  Sex: Male

DRUGS (13)
  1. RENAGEL [Suspect]
     Indication: HYPERPHOSPHATAEMIA
     Dosage: 4.8 G DAILY PO
     Route: 048
     Dates: start: 20030901
  2. RENAGEL [Suspect]
     Indication: HYPERPHOSPHATAEMIA
     Dosage: 2.4 G DAILY PO
     Route: 048
     Dates: end: 20031015
  3. FOLIC ACID [Concomitant]
  4. COMPLEX B + C [Concomitant]
  5. RIFAMPICIN [Concomitant]
  6. ISONIAZID [Concomitant]
  7. PIRIDOXINE [Concomitant]
  8. ESTAVUDINE [Concomitant]
  9. LAMIVUDINE [Concomitant]
  10. EFAVIRENZ [Concomitant]
  11. BACTRIM [Concomitant]
  12. ERYTHROPOETIN [Concomitant]
  13. IRON [Concomitant]

REACTIONS (1)
  - DERMATITIS ALLERGIC [None]
